FAERS Safety Report 21987115 (Version 2)
Quarter: 2023Q2

REPORT INFORMATION
  Report Type: Spontaneous
  Country: US (occurrence: US)
  Receive Date: 20230213
  Receipt Date: 20230511
  Transmission Date: 20230722
  Serious: No
  Sender: FDA-Public Use
  Company Number: US-SA-SAC20230210001257

PATIENT
  Sex: Male

DRUGS (1)
  1. DUPIXENT [Suspect]
     Active Substance: DUPILUMAB
     Dosage: 300 MG, FREQUENCY-: OTHER
     Route: 058

REACTIONS (4)
  - Ocular hyperaemia [Unknown]
  - Eye pruritus [Unknown]
  - Dry eye [Unknown]
  - Inappropriate schedule of product administration [Unknown]
